FAERS Safety Report 18570460 (Version 2)
Quarter: 2020Q4

REPORT INFORMATION
  Report Type: Spontaneous
  Country: US (occurrence: US)
  Receive Date: 20201202
  Receipt Date: 20201207
  Transmission Date: 20210114
  Serious: No
  Sender: FDA-Public Use
  Company Number: US-PFIZER INC-2020473570

PATIENT
  Age: 63 Year
  Sex: Female
  Weight: 53.07 kg

DRUGS (2)
  1. ALPRAZOLAM. [Suspect]
     Active Substance: ALPRAZOLAM
     Indication: PANIC ATTACK
  2. ALPRAZOLAM. [Suspect]
     Active Substance: ALPRAZOLAM
     Indication: ANXIETY
     Dosage: 1 MG, 2X/DAY

REACTIONS (4)
  - Decreased appetite [Unknown]
  - Insomnia [Unknown]
  - Intentional product use issue [Unknown]
  - Drug ineffective [Unknown]
